FAERS Safety Report 6417355-9 (Version None)
Quarter: 2009Q4

REPORT INFORMATION
  Report Type: 
  Country: None (occurrence: None)
  Receive Date: 20091028
  Receipt Date: 20091016
  Transmission Date: 20100525
  Serious: Yes (Death)
  Sender: FDA-Public Use
  Company Number: KR-PFIZER INC-2009284607

PATIENT
  Age: 40 Year

DRUGS (7)
  1. VORICONAZOLE [Suspect]
     Indication: ASPERGILLOSIS
     Dosage: 200 MG, 2X/DAY
     Route: 042
     Dates: start: 20080505, end: 20080507
  2. SOLU-MEDROL [Concomitant]
     Indication: ANTIINFLAMMATORY THERAPY
     Dosage: 250 MG, 1X/DAY
     Route: 042
     Dates: start: 20080405, end: 20080507
  3. SOLU-MEDROL [Concomitant]
     Indication: IMMUNOSUPPRESSANT DRUG THERAPY
  4. VANCOMYCIN [Concomitant]
     Indication: BRAIN ABSCESS
     Dosage: 700 MG, 2X/DAY
     Route: 042
     Dates: start: 20080504, end: 20080507
  5. MEROPEN [Concomitant]
     Indication: BRAIN ABSCESS
     Dosage: 1 G, 3X/DAY
     Route: 042
     Dates: start: 20080404, end: 20080507
  6. PANTOLOC ^BYK MADAUS^ [Concomitant]
     Indication: GASTROINTESTINAL HAEMORRHAGE
     Dosage: 40 MG, 1X/DAY
     Route: 042
     Dates: start: 20080416, end: 20080507
  7. METRONIDAZOLE [Concomitant]
     Indication: BRAIN ABSCESS
     Dosage: 500 MG, 3X/DAY
     Route: 042
     Dates: start: 20080418, end: 20080507

REACTIONS (1)
  - METABOLIC ACIDOSIS [None]
